FAERS Safety Report 8557823-7 (Version None)
Quarter: 2012Q3

REPORT INFORMATION
  Report Type: 
  Country: None (occurrence: None)
  Receive Date: 20120801
  Receipt Date: 20120523
  Transmission Date: 20120928
  Serious: Yes (Other)
  Sender: FDA-Public Use
  Company Number: US-GLAXOSMITHKLINE-A0925213A

PATIENT
  Age: 80 Year
  Sex: Male
  Weight: 73.6 kg

DRUGS (8)
  1. FORADIL [Concomitant]
  2. IRON [Concomitant]
  3. SIMVASTATIN [Concomitant]
  4. PROMACTA [Suspect]
     Indication: AUTOIMMUNE THROMBOCYTOPENIA
     Dosage: 50MG PER DAY
     Route: 048
     Dates: start: 20110325
  5. DOXAZOSIN MESYLATE [Concomitant]
  6. AVODART [Concomitant]
  7. PROVENTIL [Concomitant]
  8. OMEPRAZOLE [Concomitant]

REACTIONS (7)
  - RENAL FAILURE CHRONIC [None]
  - CONTUSION [None]
  - CREATININE RENAL CLEARANCE INCREASED [None]
  - RASH [None]
  - OEDEMA PERIPHERAL [None]
  - RENAL IMPAIRMENT [None]
  - RENAL CYST [None]
